FAERS Safety Report 6986097-3 (Version None)
Quarter: 2010Q3

REPORT INFORMATION
  Report Type: 
  Country: None (occurrence: None)
  Receive Date: 20100910
  Receipt Date: 20100830
  Transmission Date: 20110219
  Serious: Yes (Life-Threatening)
  Sender: FDA-Public Use
  Company Number: 2010P1001029

PATIENT
  Age: 27 Year
  Sex: Male

DRUGS (3)
  1. ULTIVA [Suspect]
     Indication: GENERAL ANAESTHESIA
     Dosage: IV
  2. PROPOFOL [Concomitant]
  3. METHADONE [Concomitant]

REACTIONS (5)
  - ALTERED STATE OF CONSCIOUSNESS [None]
  - CENTRAL-ALVEOLAR HYPOVENTILATION [None]
  - OVERDOSE [None]
  - POST PROCEDURAL COMPLICATION [None]
  - RESPIRATORY DEPRESSION [None]
